FAERS Safety Report 10206152 (Version 1)
Quarter: 2014Q2

REPORT INFORMATION
  Report Type: Spontaneous
  Country: US (occurrence: None)
  Receive Date: 20140528
  Receipt Date: 20140528
  Transmission Date: 20141212
  Serious: No
  Sender: FDA-Public Use
  Company Number: None

PATIENT
  Age: 67 Year
  Sex: Female

DRUGS (2)
  1. DOXYCYCLINE [Suspect]
     Indication: LYME DISEASE
     Dates: start: 20120620, end: 20120710
  2. KETOCONAZOLE [Suspect]
     Indication: FUNGAL INFECTION
     Dates: start: 20120823, end: 20120830

REACTIONS (13)
  - Drug-induced liver injury [None]
  - Fungal infection [None]
  - Pruritus [None]
  - Chromaturia [None]
  - Alanine aminotransferase increased [None]
  - Aspartate aminotransferase increased [None]
  - Blood alkaline phosphatase increased [None]
  - Blood bilirubin increased [None]
  - Faeces pale [None]
  - Nausea [None]
  - Hepatic neoplasm [None]
  - Haemangioma of liver [None]
  - Abdominal pain [None]
